FAERS Safety Report 23846899 (Version 3)
Quarter: 2024Q2

REPORT INFORMATION
  Report Type: Report from Study
  Country: US (occurrence: US)
  Receive Date: 20240513
  Receipt Date: 20240527
  Transmission Date: 20240716
  Serious: Yes (Other)
  Sender: FDA-Public Use
  Company Number: US-ARGENX-2023-ARGX-US001417

PATIENT

DRUGS (2)
  1. VYVGART [Suspect]
     Active Substance: EFGARTIGIMOD ALFA-FCAB
     Indication: Myasthenia gravis
     Dosage: UNK
     Route: 042
     Dates: start: 20221125
  2. VYVGART [Suspect]
     Active Substance: EFGARTIGIMOD ALFA-FCAB
     Dosage: 620 MG, 1/WEEK
     Route: 042
     Dates: start: 20230210

REACTIONS (18)
  - Myasthenia gravis [Unknown]
  - Myasthenia gravis [Unknown]
  - Hip arthroplasty [Unknown]
  - Fall [Unknown]
  - Balance disorder [Recovering/Resolving]
  - Myasthenia gravis [Recovering/Resolving]
  - Onychomadesis [Recovering/Resolving]
  - Symptom recurrence [Unknown]
  - Dysphonia [Not Recovered/Not Resolved]
  - Mobility decreased [Not Recovered/Not Resolved]
  - Feeling drunk [Not Recovered/Not Resolved]
  - Salivary hypersecretion [Unknown]
  - Therapeutic nerve ablation [Unknown]
  - Gait disturbance [Unknown]
  - Chest pain [Unknown]
  - Musculoskeletal chest pain [Unknown]
  - Fatigue [Not Recovered/Not Resolved]
  - Drug ineffective [Recovering/Resolving]

NARRATIVE: CASE EVENT DATE: 20230322
